FAERS Safety Report 16106733 (Version 1)
Quarter: 2019Q1

REPORT INFORMATION
  Report Type: Spontaneous
  Country: JP (occurrence: JP)
  Receive Date: 20190322
  Receipt Date: 20190322
  Transmission Date: 20190418
  Serious: Yes (Life-Threatening)
  Sender: FDA-Public Use
  Company Number: JP-MTPC-MTPC2019-0040418

PATIENT

DRUGS (18)
  1. MUCOSTA [Concomitant]
     Active Substance: REBAMIPIDE
     Dosage: 200 MILLIGRAM, QD
     Route: 065
  2. TAKECAB [Concomitant]
     Active Substance: VONOPRAZAN FUMURATE
     Route: 065
  3. MIYA-BM [Concomitant]
     Active Substance: CLOSTRIDIUM BUTYRICUM SPORES STRAIN M-55
     Dosage: 4 DOSAGE FORM, QD
     Route: 048
  4. ?TIZANIDINE HYDROCHLORIDE [Concomitant]
     Dosage: 1 MILLIGRAM, QD
     Route: 065
  5. RIVOTRIL [Concomitant]
     Active Substance: CLONAZEPAM
     Dosage: 1 MILLIGRAM, QD
     Route: 065
  6. SHAKUYAKUKANZOTO [Concomitant]
     Active Substance: HERBALS
     Dosage: 5 GRAM, QD
     Route: 065
  7. NEUROTROPIN [Concomitant]
     Active Substance: NEUROTROPIN
     Dosage: 8 INTERNATIONAL UNIT, QD
     Route: 065
  8. SYMMETREL [Concomitant]
     Active Substance: AMANTADINE HYDROCHLORIDE
     Dosage: 100 MILLIGRAM, QD
  9. XARELTO [Concomitant]
     Active Substance: RIVAROXABAN
     Dosage: 10 MILLIGRAM, QD
     Route: 065
  10. ?TRIHEXYPHENIDYL HYDROCHLORIDE [Concomitant]
     Dosage: 4 MILLIGRAM, QD
     Route: 065
  11. PLETAAL [Concomitant]
     Active Substance: CILOSTAZOL
     Dosage: 50 MILLIGRAM, QD
     Route: 065
  12. PLAVIX [Concomitant]
     Active Substance: CLOPIDOGREL BISULFATE
     Dosage: 25 MILLIGRAM, QD
     Route: 065
  13. THYRADIN [Concomitant]
     Active Substance: LEVOTHYROXINE
     Dosage: 100 MICROGRAM, QD
  14. RADICUT INJ. 30MG [Suspect]
     Active Substance: EDARAVONE
     Indication: TRANSIENT ISCHAEMIC ATTACK
     Dosage: 15 MILLIGRAM, QD
     Route: 042
     Dates: start: 20180703, end: 20180709
  15. SERMION (NICERGOLINE) [Suspect]
     Active Substance: NICERGOLINE
     Dosage: 15 MILLIGRAM, QD
     Route: 048
  16. TRICOR [Concomitant]
     Active Substance: FENOFIBRATE
     Dosage: 160 MILLIGRAM, QD
     Route: 065
  17. FEBURIC [Concomitant]
     Active Substance: FEBUXOSTAT
     Dosage: 10 MILLIGRAM, QD
     Route: 065
  18. DAIKENCHUTO [Concomitant]
     Active Substance: HERBALS
     Dosage: 5 GRAM, QD
     Route: 065

REACTIONS (1)
  - Hepatitis fulminant [Recovered/Resolved]

NARRATIVE: CASE EVENT DATE: 20180711
